FAERS Safety Report 25971818 (Version 1)
Quarter: 2025Q4

REPORT INFORMATION
  Report Type: Spontaneous
  Country: EU (occurrence: EU)
  Receive Date: 20251029
  Receipt Date: 20251029
  Transmission Date: 20260117
  Serious: Yes (Other)
  Sender: RK PHARMA
  Company Number: EU-RK PHARMA, INC-20251000156

PATIENT
  Age: 70 Year
  Sex: Female

DRUGS (4)
  1. MITOMYCIN [Suspect]
     Active Substance: MITOMYCIN
     Indication: Hyperthermic chemotherapy
     Dosage: 25 MILLIGRAM/SQ. METER, 90 MIN
     Route: 065
  2. MITOMYCIN [Suspect]
     Active Substance: MITOMYCIN
     Indication: Cytoreductive surgery
  3. CISPLATIN [Suspect]
     Active Substance: CISPLATIN
     Indication: Hyperthermic chemotherapy
     Dosage: 50 MILLIGRAM/SQ. METER 90MIN
     Route: 065
  4. CISPLATIN [Suspect]
     Active Substance: CISPLATIN
     Indication: Cytoreductive surgery

REACTIONS (1)
  - Panniculitis [Recovered/Resolved]
